FAERS Safety Report 7641114-2 (Version None)
Quarter: 2011Q3

REPORT INFORMATION
  Report Type: 
  Country: None (occurrence: None)
  Receive Date: 20110728
  Receipt Date: 20110722
  Transmission Date: 20111222
  Serious: Yes (Death)
  Sender: FDA-Public Use
  Company Number: JP-KINGPHARMUSA00001-K201100495

PATIENT
  Sex: Male
  Weight: 64 kg

DRUGS (12)
  1. PLAVIX [Concomitant]
     Indication: CARDIAC FAILURE
     Dosage: 75 MG, QD
     Route: 048
     Dates: start: 20091007, end: 20091017
  2. FENTANYL [Concomitant]
     Indication: CARDIAC FAILURE
     Dosage: 0.5 MG, QD
     Route: 030
     Dates: start: 20091007, end: 20091017
  3. VANCOMYCIN [Concomitant]
     Indication: SEPSIS
     Dosage: 2 G, QD
     Route: 042
     Dates: start: 20091007, end: 20091017
  4. PRECEDEX [Concomitant]
     Indication: CARDIAC FAILURE
     Dosage: 200 MCG, QD
     Route: 042
     Dates: start: 20091007, end: 20091017
  5. VANCOMYCIN [Concomitant]
     Indication: TOXIC SHOCK SYNDROME STAPHYLOCOCCAL
  6. SIGMART [Concomitant]
     Indication: CARDIAC FAILURE
     Dosage: 4 MG, QD
     Route: 042
     Dates: start: 20091007, end: 20091017
  7. SYNERCID [Suspect]
     Indication: TOXIC SHOCK SYNDROME STAPHYLOCOCCAL
  8. FIRSTCIN [Concomitant]
     Indication: INFECTION
     Dosage: 4 G, QD
     Route: 042
     Dates: start: 20091007, end: 20091017
  9. GASMOTIN [Concomitant]
     Indication: PROPHYLAXIS
     Dosage: 15 MG, QD
     Route: 048
     Dates: start: 20091007, end: 20091017
  10. ALPROSTADIL [Concomitant]
     Indication: CARDIAC FAILURE
     Dosage: 1500 MCG, QD
     Route: 042
     Dates: start: 20091007, end: 20091017
  11. SYNERCID [Suspect]
     Indication: SEPSIS
     Dosage: 7.5 MG/KG, SINGLE
     Route: 042
     Dates: start: 20091010, end: 20091010
  12. SYNERCID [Suspect]
     Indication: STAPHYLOCOCCAL SEPSIS
     Dosage: 7.5 MG/KG, TID
     Route: 042
     Dates: start: 20091011, end: 20091016

REACTIONS (1)
  - ARTERIOSCLEROSIS OBLITERANS [None]
